FAERS Safety Report 7045664-1 (Version None)
Quarter: 2010Q4

REPORT INFORMATION
  Report Type: 
  Country: None (occurrence: None)
  Receive Date: 20101013
  Receipt Date: 20101013
  Transmission Date: 20110411
  Serious: Yes (Other)
  Sender: FDA-Public Use
  Company Number: None

PATIENT
  Age: 78 Year
  Sex: Female

DRUGS (2)
  1. PROCRIT [Suspect]
     Indication: ANAEMIA
     Dosage: 40,000 UNITS ONCE PER MONTH SQ
     Route: 058
     Dates: start: 20100602, end: 20100602
  2. PROCRIT [Suspect]
     Dates: start: 20100719, end: 20100719

REACTIONS (3)
  - INJECTION SITE NODULE [None]
  - POOR QUALITY DRUG ADMINISTERED [None]
  - TRANSMISSION OF AN INFECTIOUS AGENT VIA A MEDICINAL PRODUCT [None]
